FAERS Safety Report 14826211 (Version 2)
Quarter: 2018Q2

REPORT INFORMATION
  Report Type: Spontaneous
  Country: SI (occurrence: SI)
  Receive Date: 20180430
  Receipt Date: 20180524
  Transmission Date: 20180711
  Serious: Yes (Hospitalization, Other)
  Sender: FDA-Public Use
  Company Number: SI-MERCK KGAA-2046829

PATIENT
  Sex: Male

DRUGS (12)
  1. MAREVAN [Suspect]
     Active Substance: WARFARIN SODIUM
  2. LEVOSIMENDAN [Suspect]
     Active Substance: LEVOSIMENDAN
  3. PANTOPRAZOLE [Suspect]
     Active Substance: PANTOPRAZOLE
  4. PLIVIT D3 [Suspect]
     Active Substance: CHOLECALCIFEROL
  5. EDEMID [Suspect]
     Active Substance: FUROSEMIDE
  6. ENTRESTO [Suspect]
     Active Substance: SACUBITRIL\VALSARTAN
  7. IROPREM [Suspect]
     Active Substance: DEXTRIFERRON
  8. PRAVASTATIN. [Suspect]
     Active Substance: PRAVASTATIN
  9. EPOETIN ALFA [Suspect]
     Active Substance: ERYTHROPOIETIN
     Route: 058
  10. NOVOTHYROX [Suspect]
     Active Substance: LEVOTHYROXINE SODIUM
     Indication: PRODUCT USED FOR UNKNOWN INDICATION
  11. ALOPURINOL [Suspect]
     Active Substance: ALLOPURINOL
  12. ALDACTONE [Suspect]
     Active Substance: SPIRONOLACTONE

REACTIONS (18)
  - Respiratory tract infection viral [Unknown]
  - Left ventricular hypertrophy [Unknown]
  - Cyanosis [Recovering/Resolving]
  - Myocardial infarction [Unknown]
  - Cardiac failure [Unknown]
  - Tricuspid valve incompetence [Unknown]
  - Upper gastrointestinal haemorrhage [Unknown]
  - Nephrogenic anaemia [Recovering/Resolving]
  - Pulmonary hypertension [Unknown]
  - Dyspnoea [Recovering/Resolving]
  - Myocardial ischaemia [Unknown]
  - Ejection fraction decreased [Unknown]
  - Jugular vein distension [Recovering/Resolving]
  - Peripheral swelling [Recovering/Resolving]
  - Blood pressure abnormal [Unknown]
  - Dependence on oxygen therapy [Unknown]
  - Respiratory failure [Unknown]
  - Oedema [Unknown]

NARRATIVE: CASE EVENT DATE: 201707
